FAERS Safety Report 7340757-3 (Version None)
Quarter: 2011Q1

REPORT INFORMATION
  Report Type: 
  Country: None (occurrence: None)
  Receive Date: 20110309
  Receipt Date: 20110309
  Transmission Date: 20110831
  Serious: Yes (Other)
  Sender: FDA-Public Use
  Company Number: US-JNJFOC-20100805173

PATIENT

DRUGS (5)
  1. LEVAQUIN [Suspect]
     Indication: UPPER RESPIRATORY TRACT INFECTION
     Route: 048
  2. LEVAQUIN [Suspect]
     Indication: BRONCHITIS
     Route: 048
  3. LEVAQUIN [Suspect]
     Indication: SINUSITIS
     Route: 048
  4. LEVAQUIN [Suspect]
     Indication: ASTHMA
     Route: 048
  5. LEVAQUIN [Suspect]
     Route: 048

REACTIONS (3)
  - ROTATOR CUFF SYNDROME [None]
  - MUSCULOSKELETAL PAIN [None]
  - TENDONITIS [None]
